FAERS Safety Report 25540942 (Version 1)
Quarter: 2025Q3

REPORT INFORMATION
  Report Type: Spontaneous
  Country: US (occurrence: US)
  Receive Date: 20250710
  Receipt Date: 20250710
  Transmission Date: 20251020
  Serious: No
  Sender: LUNDBECK
  Company Number: US-LUNDBECK-DKLU4015948

PATIENT
  Age: 20 Year
  Sex: Female

DRUGS (1)
  1. NORTHERA [Suspect]
     Active Substance: DROXIDOPA
     Indication: Illness
     Dosage: 200 MILLIGRAM
     Route: 048
     Dates: start: 20250601

REACTIONS (3)
  - Headache [Unknown]
  - Dizziness [Unknown]
  - Malaise [Unknown]
